FAERS Safety Report 7255279-8 (Version None)
Quarter: 2011Q1

REPORT INFORMATION
  Report Type: 
  Country: None (occurrence: None)
  Receive Date: 20110129
  Receipt Date: 20100223
  Transmission Date: 20110831
  Serious: No
  Sender: FDA-Public Use
  Company Number: US-ABBOTT-10P-163-0629314-00

PATIENT
  Sex: Male
  Weight: 77.18 kg

DRUGS (4)
  1. UNKNOWN PAIN KILLERS [Concomitant]
     Indication: PAIN
  2. UNKNOWN HIGH CHOLESTEROL MEDICATION [Concomitant]
     Indication: BLOOD CHOLESTEROL INCREASED
  3. UNKNOWN HYPERTENSIVE MEDICATION [Concomitant]
     Indication: HYPERTENSION
  4. HUMIRA [Suspect]
     Indication: RHEUMATOID ARTHRITIS
     Route: 058
     Dates: start: 20091001

REACTIONS (4)
  - GAIT DISTURBANCE [None]
  - INJECTION SITE PAIN [None]
  - JOINT STIFFNESS [None]
  - MALAISE [None]
